FAERS Safety Report 21225162 (Version 1)
Quarter: 2022Q3

REPORT INFORMATION
  Report Type: Spontaneous
  Country: US (occurrence: US)
  Receive Date: 20220817
  Receipt Date: 20220817
  Transmission Date: 20221026
  Serious: No
  Sender: FDA-Public Use
  Company Number: US-OTSUKA-2022_021127

PATIENT
  Age: 12 Year
  Sex: Male

DRUGS (3)
  1. ARIPIPRAZOLE [Suspect]
     Active Substance: ARIPIPRAZOLE
     Indication: Attention deficit hyperactivity disorder
     Dosage: 4 MG (2 TABLETS OF 2 MG)
     Route: 065
     Dates: start: 20220329
  2. ARIPIPRAZOLE [Suspect]
     Active Substance: ARIPIPRAZOLE
     Indication: Depression
  3. RITALIN [Concomitant]
     Active Substance: METHYLPHENIDATE HYDROCHLORIDE
     Indication: Product used for unknown indication
     Dosage: UNK
     Route: 065

REACTIONS (4)
  - Agitation [Not Recovered/Not Resolved]
  - Product use in unapproved indication [Unknown]
  - Product use issue [Unknown]
  - Drug ineffective for unapproved indication [Unknown]

NARRATIVE: CASE EVENT DATE: 20220329
